FAERS Safety Report 15618940 (Version 1)
Quarter: 2018Q4

REPORT INFORMATION
  Report Type: Spontaneous
  Country: US (occurrence: US)
  Receive Date: 20181114
  Receipt Date: 20181114
  Transmission Date: 20190205
  Serious: Yes (Hospitalization)
  Sender: FDA-Public Use
  Company Number: US-ELI_LILLY_AND_COMPANY-US201811004396

PATIENT
  Sex: Female

DRUGS (2)
  1. DULOXETINE HYDROCHLORIDE. [Suspect]
     Active Substance: DULOXETINE HYDROCHLORIDE
     Indication: PRODUCT USED FOR UNKNOWN INDICATION
     Dosage: UNK UNK, UNKNOWN
     Route: 065
     Dates: start: 2016, end: 2017
  2. CYMBALTA [Suspect]
     Active Substance: DULOXETINE HYDROCHLORIDE
     Indication: PRODUCT USED FOR UNKNOWN INDICATION
     Dosage: UNK UNK, UNKNOWN
     Route: 065
     Dates: start: 2016, end: 2017

REACTIONS (18)
  - Memory impairment [Unknown]
  - Pain [Unknown]
  - Muscle spasms [Unknown]
  - Nausea [Unknown]
  - Mobility decreased [Unknown]
  - Vision blurred [Unknown]
  - Anxiety [Unknown]
  - Eye irritation [Unknown]
  - Nightmare [Unknown]
  - Cerebral disorder [Not Recovered/Not Resolved]
  - Choking sensation [Unknown]
  - Hypophagia [Unknown]
  - Migraine [Unknown]
  - Dyspepsia [Unknown]
  - Dyskinesia [Unknown]
  - Hot flush [Unknown]
  - Anger [Unknown]
  - Feeling abnormal [Unknown]
